FAERS Safety Report 6285644-7 (Version None)
Quarter: 2009Q3

REPORT INFORMATION
  Report Type: 
  Country: None (occurrence: None)
  Receive Date: 20090724
  Receipt Date: 20090714
  Transmission Date: 20100115
  Serious: Yes (Hospitalization)
  Sender: FDA-Public Use
  Company Number: SPV1-2009-01448

PATIENT
  Age: 8 Year
  Sex: Male

DRUGS (1)
  1. ELAPRASE [Suspect]
     Indication: MUCOPOLYSACCHARIDOSIS II
     Dosage: 1X/WEEK, IV DRIP
     Route: 041
     Dates: start: 20090612

REACTIONS (1)
  - LARYNGEAL STENOSIS [None]
